FAERS Safety Report 9356304 (Version 1)
Quarter: 2013Q2

REPORT INFORMATION
  Report Type: Spontaneous
  Country: FR (occurrence: FR)
  Receive Date: 20130619
  Receipt Date: 20130619
  Transmission Date: 20140414
  Serious: Yes (Hospitalization)
  Sender: FDA-Public Use
  Company Number: FR-TEVA-413565ISR

PATIENT
  Sex: Male

DRUGS (2)
  1. FUROSEMIDE TEVA 40 MG [Suspect]
  2. LEXOMIL [Concomitant]
     Indication: SLEEP DISORDER
     Dosage: 1 DOSAGE FORMS DAILY; EVENING

REACTIONS (3)
  - Cardiac disorder [Unknown]
  - Bronchitis [Unknown]
  - Fatigue [Unknown]
